FAERS Safety Report 23087784 (Version 1)
Quarter: 2023Q4

REPORT INFORMATION
  Report Type: Report from Study
  Country: CA (occurrence: CA)
  Receive Date: 20231020
  Receipt Date: 20231020
  Transmission Date: 20240109
  Serious: Yes (Hospitalization)
  Sender: FDA-Public Use
  Company Number: CA-ABBVIE-5455254

PATIENT
  Sex: Female

DRUGS (1)
  1. RINVOQ [Suspect]
     Active Substance: UPADACITINIB
     Indication: Dermatitis atopic
     Dosage: FORM STRENGTH: 30MG
     Route: 048
     Dates: start: 20230418

REACTIONS (3)
  - Joint injury [Unknown]
  - Skin disorder [Unknown]
  - Eye swelling [Unknown]

NARRATIVE: CASE EVENT DATE: 20230101
